FAERS Safety Report 21919245 (Version 1)
Quarter: 2023Q1

REPORT INFORMATION
  Report Type: Spontaneous
  Country: US (occurrence: None)
  Receive Date: 20230126
  Receipt Date: 20230126
  Transmission Date: 20230418
  Serious: Yes (Hospitalization)
  Sender: FDA-Public Use
  Company Number: None

PATIENT
  Sex: Male

DRUGS (6)
  1. TOBRAMYCIN [Suspect]
     Active Substance: TOBRAMYCIN
     Indication: Bronchiectasis
     Route: 055
     Dates: start: 20180126
  2. TOBRAMYCIN [Suspect]
     Active Substance: TOBRAMYCIN
     Indication: Condition aggravated
  3. ASPIRIN TAB [Concomitant]
  4. CALCIUM 600 TAB +D [Concomitant]
  5. CO Q-10 CAP [Concomitant]
  6. PEPCID TAB [Concomitant]

REACTIONS (2)
  - Product use issue [None]
  - Hospitalisation [None]
